FAERS Safety Report 6493739-8 (Version None)
Quarter: 2009Q4

REPORT INFORMATION
  Report Type: 
  Country: None (occurrence: None)
  Receive Date: 20091214
  Receipt Date: 20090406
  Transmission Date: 20100525
  Serious: No
  Sender: FDA-Public Use
  Company Number: US-BRISTOL-MYERS SQUIBB COMPANY-13663281

PATIENT
  Age: 34 Year
  Sex: Male

DRUGS (3)
  1. ABILIFY [Suspect]
     Indication: BIPOLAR DISORDER
     Dosage: DOSE LOWERED TO 15MG.
     Route: 048
     Dates: start: 20040921
  2. TOPAMAX [Concomitant]
  3. LUNESTA [Concomitant]

REACTIONS (3)
  - RESTLESS LEGS SYNDROME [None]
  - RESTLESSNESS [None]
  - SEXUAL DYSFUNCTION [None]
